FAERS Safety Report 17449934 (Version 1)
Quarter: 2020Q1

REPORT INFORMATION
  Report Type: Spontaneous
  Country: US (occurrence: US)
  Receive Date: 20200207
  Receipt Date: 20200207
  Transmission Date: 20200409
  Serious: No
  Sender: FDA-Public Use
  Company Number: None

PATIENT
  Age: 25 Year
  Sex: Female

DRUGS (1)
  1. AMBRISENTAN 10 MG TABLETS 30/BO: 10MG [Suspect]
     Active Substance: AMBRISENTAN
     Indication: PULMONARY ARTERIAL HYPERTENSION
     Route: 048
     Dates: start: 20170120

REACTIONS (7)
  - Dyspnoea [None]
  - Urinary incontinence [None]
  - Tremor [None]
  - Treatment noncompliance [None]
  - Syncope [None]
  - Dizziness [None]
  - Seizure [None]

NARRATIVE: CASE EVENT DATE: 20200207
